FAERS Safety Report 7952135-4 (Version None)
Quarter: 2011Q4

REPORT INFORMATION
  Report Type: 
  Country: None (occurrence: None)
  Receive Date: 20111201
  Receipt Date: 20111121
  Transmission Date: 20120403
  Serious: Yes (Other)
  Sender: FDA-Public Use
  Company Number: PHHY2011JP103873

PATIENT
  Age: 64 Year
  Sex: Female

DRUGS (3)
  1. TASIGNA [Suspect]
     Indication: CHRONIC MYELOID LEUKAEMIA
     Dosage: 4 DF, QD
     Route: 048
     Dates: start: 20100801
  2. WARFARIN SODIUM [Concomitant]
     Dosage: 3 DF
  3. WARFARIN SODIUM [Concomitant]
     Dosage: 2.5 DF

REACTIONS (4)
  - PRURITUS [None]
  - LEUKOCYTOCLASTIC VASCULITIS [None]
  - RASH [None]
  - INTERNATIONAL NORMALISED RATIO INCREASED [None]
